FAERS Safety Report 7141822-6 (Version None)
Quarter: 2010Q4

REPORT INFORMATION
  Report Type: 
  Country: None (occurrence: None)
  Receive Date: 20101207
  Receipt Date: 20101111
  Transmission Date: 20110411
  Serious: No
  Sender: FDA-Public Use
  Company Number: US-PFIZER INC-2010149502

PATIENT
  Sex: Male
  Weight: 181.41 kg

DRUGS (1)
  1. ADVIL [Suspect]
     Indication: BACK PAIN
     Dosage: UNK

REACTIONS (2)
  - DRUG INEFFECTIVE [None]
  - INCORRECT DOSE ADMINISTERED [None]
